FAERS Safety Report 5421574-8 (Version None)
Quarter: 2007Q3

REPORT INFORMATION
  Report Type: 
  Country: None (occurrence: None)
  Receive Date: 20070726
  Receipt Date: 20070524
  Transmission Date: 20080115
  Serious: Yes (Hospitalization)
  Sender: FDA-Public Use
  Company Number: US200705006209

PATIENT
  Age: 88 Year
  Sex: Male

DRUGS (2)
  1. FORTEO [Suspect]
     Indication: OSTEOPOROSIS
     Dates: start: 20070101
  2. FORTEO PEN (TERIPARATIDE) PEN, DIPOSABLE [Concomitant]

REACTIONS (1)
  - PNEUMONIA [None]
